FAERS Safety Report 6086905-7 (Version None)
Quarter: 2009Q1

REPORT INFORMATION
  Report Type: 
  Country: None (occurrence: None)
  Receive Date: 20090223
  Receipt Date: 20090218
  Transmission Date: 20090719
  Serious: Yes (Other)
  Sender: FDA-Public Use
  Company Number: PT-ASTRAZENECA-2009AC00595

PATIENT
  Age: 74 Year
  Sex: Male

DRUGS (7)
  1. ROSUVASTATIN CALCIUM [Suspect]
     Dates: start: 20060401
  2. BISOPROLOL [Concomitant]
  3. FUROSEMIDE [Concomitant]
  4. TICLOPIDINE HCL [Concomitant]
  5. ALLOPURINOL [Concomitant]
  6. CALCIUM [Concomitant]
  7. SODIUM ALENDRONATE [Concomitant]

REACTIONS (1)
  - CONDITION AGGRAVATED [None]
